FAERS Safety Report 12673775 (Version 3)
Quarter: 2016Q4

REPORT INFORMATION
  Report Type: Report from Study
  Country: US (occurrence: US)
  Receive Date: 20160822
  Receipt Date: 20161021
  Transmission Date: 20170207
  Serious: Yes (Hospitalization)
  Sender: FDA-Public Use
  Company Number: US-SA-2016SA151315

PATIENT
  Age: 83 Year
  Sex: Male

DRUGS (5)
  1. ALLOPURINOL. [Concomitant]
     Active Substance: ALLOPURINOL
     Dates: start: 20160401
  2. ASPIRIN. [Concomitant]
     Active Substance: ASPIRIN
     Dates: start: 20130430
  3. TAXOTERE [Suspect]
     Active Substance: DOCETAXEL
     Indication: TRANSITIONAL CELL CARCINOMA
     Route: 065
     Dates: start: 20160729, end: 20160729
  4. BLINDED THERAPY [Suspect]
     Active Substance: INVESTIGATIONAL PRODUCT
     Indication: TRANSITIONAL CELL CARCINOMA
     Route: 065
     Dates: start: 20160729, end: 20160729
  5. LOSARTAN HIDROCLOROTIAZIDA [Concomitant]
     Dates: start: 20160404, end: 20160730

REACTIONS (2)
  - Gait disturbance [Recovered/Resolved]
  - Transient ischaemic attack [Recovered/Resolved]

NARRATIVE: CASE EVENT DATE: 20160730
